FAERS Safety Report 9103316 (Version 3)
Quarter: 2013Q1

REPORT INFORMATION
  Report Type: Spontaneous
  Country: ES (occurrence: ES)
  Receive Date: 20130218
  Receipt Date: 20130326
  Transmission Date: 20140127
  Serious: Yes (Hospitalization, Other)
  Sender: FDA-Public Use
  Company Number: ES-009507513-1302ESP006166

PATIENT
  Age: 41 Year
  Sex: Female

DRUGS (1)
  1. NUVARING [Suspect]
     Indication: CONTRACEPTION
     Dosage: ETONOGESTREL 0.120 MILLIGRAM (+) ETHINYL 0.05 MILLIGRAM
     Route: 067
     Dates: start: 2008, end: 20130312

REACTIONS (6)
  - Foreign body [Recovered/Resolved]
  - Incorrect route of drug administration [Unknown]
  - Urinary tract infection [Unknown]
  - Abdominal pain [Unknown]
  - Pelvic pain [Unknown]
  - Cystoscopy [Recovered/Resolved]
